FAERS Safety Report 11703469 (Version 1)
Quarter: 2015Q4

REPORT INFORMATION
  Report Type: Spontaneous
  Country: US (occurrence: US)
  Receive Date: 20151105
  Receipt Date: 20151105
  Transmission Date: 20160304
  Serious: No
  Sender: FDA-Public Use
  Company Number: US-ANACOR-2015ANA00135

PATIENT
  Sex: Female
  Weight: 65.76 kg

DRUGS (1)
  1. KERYDIN [Suspect]
     Active Substance: TAVABOROLE
     Indication: FUNGAL INFECTION
     Dosage: 1 DOSAGE UNITS, 1X/DAY
     Route: 061
     Dates: start: 201503

REACTIONS (3)
  - Application site pain [Unknown]
  - Application site haemorrhage [Not Recovered/Not Resolved]
  - Application site exfoliation [Not Recovered/Not Resolved]

NARRATIVE: CASE EVENT DATE: 2015
